FAERS Safety Report 6846991-0 (Version None)
Quarter: 2010Q3

REPORT INFORMATION
  Report Type: 
  Country: None (occurrence: None)
  Receive Date: 20100713
  Receipt Date: 20100629
  Transmission Date: 20110219
  Serious: Yes (Death, Other)
  Sender: FDA-Public Use
  Company Number: 2010SCPR001152

PATIENT
  Age: 80 Year
  Sex: Female
  Weight: 39.7 kg

DRUGS (4)
  1. DEXAMETHASONE [Suspect]
     Indication: ASTHMA
     Dosage: 8 MG, QD, INTRAVENOUS; 4 MG, QD, INTRAVENOUS
     Route: 042
  2. DEXAMETHASONE [Suspect]
     Indication: ASTHMA
     Dosage: 8 MG, QD, INTRAVENOUS; 4 MG, QD, INTRAVENOUS
     Route: 042
  3. PREDNISOLONE [Suspect]
     Indication: ASTHMA
     Dosage: 7.5 MG, QD, ORAL
     Route: 048
  4. AMINOPHYLLINE (AMINOPHYLLINE) UNKNOWN [Concomitant]

REACTIONS (21)
  - AZOTAEMIA [None]
  - BLOOD AMYLASE INCREASED [None]
  - BLOOD FIBRINOGEN INCREASED [None]
  - BLOOD LACTATE DEHYDROGENASE INCREASED [None]
  - CYSTITIS HAEMORRHAGIC [None]
  - CYTOMEGALOVIRUS INFECTION [None]
  - DEHYDRATION [None]
  - DISSEMINATED INTRAVASCULAR COAGULATION [None]
  - EATING DISORDER [None]
  - FIBRIN DEGRADATION PRODUCTS INCREASED [None]
  - HAEMATURIA [None]
  - HISTIOCYTOSIS HAEMATOPHAGIC [None]
  - HYPERNATRAEMIA [None]
  - LYMPHOPENIA [None]
  - MELAENA [None]
  - OLIGURIA [None]
  - PNEUMONIA [None]
  - PSEUDOMONAS INFECTION [None]
  - RESPIRATORY FAILURE [None]
  - SOMNOLENCE [None]
  - THROMBOCYTOPENIA [None]
